FAERS Safety Report 24180350 (Version 1)
Quarter: 2024Q3

REPORT INFORMATION
  Report Type: Spontaneous
  Country: GB (occurrence: GB)
  Receive Date: 20240806
  Receipt Date: 20240806
  Transmission Date: 20241017
  Serious: Yes (Other)
  Sender: PFIZER
  Company Number: None

PATIENT
  Age: 52 Year
  Sex: Female
  Weight: 95 kg

DRUGS (12)
  1. EXEMESTANE [Suspect]
     Active Substance: EXEMESTANE
     Dosage: 25 MG
  2. HYDROXOCOBALAMIN [Concomitant]
     Active Substance: HYDROXOCOBALAMIN
     Dosage: IM INJECTION EVERY 3MONTHS
     Route: 030
     Dates: start: 20240719
  3. CALCIUM CARBONATE [Concomitant]
     Active Substance: CALCIUM CARBONATE
     Dosage: TAKE ONE TWICE DAILY THIS IS THE SAME AS ADCAL D3
     Dates: start: 20230427
  4. ESTRIOL [Concomitant]
     Active Substance: ESTRIOL
     Dosage: APPLY AT NIGHT ONCE DAILY UNTIL SYMPTOMS
     Dates: start: 20230427
  5. NAPROXEN [Concomitant]
     Active Substance: NAPROXEN
     Dosage: ONE TO BE TAKEN TWICE A DAY
     Dates: start: 20230427
  6. OMEPRAZOLE [Concomitant]
     Active Substance: OMEPRAZOLE
     Dosage: TAKE ONE DAILY
     Dates: start: 20230427
  7. TAMOXIFEN [Concomitant]
     Active Substance: TAMOXIFEN
     Dosage: TAKE ONE TABLET ONCE PER DAY TO HELP CONTROL BR...
     Dates: start: 20230427
  8. TRAMADOL [Concomitant]
     Active Substance: TRAMADOL\TRAMADOL HYDROCHLORIDE
     Dosage: ONE OR TWO TO BE TAKEN EVERY FOUR HOURS WHEN NE
     Dates: start: 20240222
  9. FERROUS FUMARATE [Concomitant]
     Active Substance: FERROUS FUMARATE
     Indication: Prophylaxis
     Dosage: TAKE ONE TABLET ONCE A DAY
     Dates: start: 20240424
  10. FORCEVAL [AMINO ACIDS NOS;ELECTROLYTES NOS;FERROUS FUMARATE;NICOTINAMI [Concomitant]
     Dosage: TAKE ONE DAILY
     Dates: start: 20240424
  11. RAMIPRIL [Concomitant]
     Active Substance: RAMIPRIL
     Dosage: TAKE ONE CAPSULE EACH MORNING TO HELP BLOOD PRE...
     Dates: start: 20240430
  12. TOLTERODINE TARTRATE [Concomitant]
     Active Substance: TOLTERODINE TARTRATE
     Dosage: TAKE ONE TABLET TWICE A DAY TO TREAT BLADDER SY...
     Dates: start: 20240430

REACTIONS (1)
  - Drug intolerance [Recovered/Resolved]

NARRATIVE: CASE EVENT DATE: 20240731
